FAERS Safety Report 7645920-X (Version None)
Quarter: 2011Q3

REPORT INFORMATION
  Report Type: 
  Country: None (occurrence: None)
  Receive Date: 20110729
  Receipt Date: 20110720
  Transmission Date: 20111222
  Serious: Yes (Disabling)
  Sender: FDA-Public Use
  Company Number: PT-MERCK-1107PRT00014

PATIENT
  Age: 12 Year
  Sex: Female

DRUGS (1)
  1. SINGULAIR [Suspect]
     Indication: ASTHMA
     Route: 065
     Dates: end: 20110101

REACTIONS (2)
  - GUILLAIN-BARRE SYNDROME [None]
  - DEPRESSION [None]
